FAERS Safety Report 10538130 (Version 2)
Quarter: 2014Q4

REPORT INFORMATION
  Report Type: Spontaneous
  Country: US (occurrence: US)
  Receive Date: 20141023
  Receipt Date: 20141023
  Transmission Date: 20150529
  Serious: Yes (Other)
  Sender: FDA-Public Use
  Company Number: US-FRI-1000006988

PATIENT
  Age: 49 Year
  Sex: Female

DRUGS (14)
  1. ARMOUR THYROID [Suspect]
     Active Substance: THYROID, PORCINE\THYROID, UNSPECIFIED
     Dosage: 180 MG
     Route: 048
     Dates: start: 20090506, end: 20090519
  2. ARMOUR THYROID [Suspect]
     Active Substance: THYROID, PORCINE\THYROID, UNSPECIFIED
     Indication: HYPOTHYROIDISM
     Dosage: 105 MG
     Route: 048
     Dates: start: 200612, end: 20090310
  3. ARMOUR THYROID [Suspect]
     Active Substance: THYROID, PORCINE\THYROID, UNSPECIFIED
     Dosage: 165 MG
     Route: 048
     Dates: start: 20090422, end: 20090505
  4. ARMOUR THYROID [Suspect]
     Active Substance: THYROID, PORCINE\THYROID, UNSPECIFIED
     Indication: HYPOTHYROIDISM
     Dosage: 210 MG
     Route: 048
     Dates: start: 20090603, end: 20090611
  5. ARMOUR THYROID [Suspect]
     Active Substance: THYROID, PORCINE\THYROID, UNSPECIFIED
     Indication: HYPOTHYROIDISM
     Dosage: 180 MG
     Route: 048
     Dates: start: 2009, end: 20091218
  6. CYTOMEL [Concomitant]
     Active Substance: LIOTHYRONINE SODIUM
     Indication: HYPOTHYROIDISM
     Dates: start: 20090618, end: 20091028
  7. ARMOUR THYROID [Suspect]
     Active Substance: THYROID, PORCINE\THYROID, UNSPECIFIED
     Dosage: 120 MG
     Route: 048
     Dates: start: 20090311, end: 20090324
  8. ARMOUR THYROID [Suspect]
     Active Substance: THYROID, PORCINE\THYROID, UNSPECIFIED
     Dosage: 195 MG
     Route: 048
     Dates: start: 20090520, end: 20090602
  9. ARMOUR THYROID [Suspect]
     Active Substance: THYROID, PORCINE\THYROID, UNSPECIFIED
     Dosage: 60 MG
     Route: 048
     Dates: start: 20090622, end: 20090911
  10. ARMOUR THYROID [Suspect]
     Active Substance: THYROID, PORCINE\THYROID, UNSPECIFIED
     Indication: HYPOTHYROIDISM
     Route: 048
     Dates: start: 20091013, end: 2009
  11. ARMOUR THYROID [Suspect]
     Active Substance: THYROID, PORCINE\THYROID, UNSPECIFIED
     Dosage: 150 MG
     Route: 048
     Dates: start: 2009, end: 2009
  12. ARMOUR THYROID [Suspect]
     Active Substance: THYROID, PORCINE\THYROID, UNSPECIFIED
     Dosage: 135 MG
     Route: 048
     Dates: start: 20090325, end: 20090407
  13. ARMOUR THYROID [Suspect]
     Active Substance: THYROID, PORCINE\THYROID, UNSPECIFIED
     Dosage: 90 MG
     Route: 048
     Dates: start: 20090612, end: 20090621
  14. ARMOUR THYROID [Suspect]
     Active Substance: THYROID, PORCINE\THYROID, UNSPECIFIED
     Dosage: 150 MG
     Route: 048
     Dates: start: 20090408, end: 20090421

REACTIONS (11)
  - Headache [Recovered/Resolved]
  - Drug ineffective [Recovered/Resolved]
  - Palpitations [Recovered/Resolved]
  - Dry skin [Recovered/Resolved]
  - Hyperthyroidism [Recovered/Resolved]
  - Weight decreased [Recovered/Resolved]
  - Feeling abnormal [Recovered/Resolved]
  - Feeling jittery [Recovered/Resolved]
  - Body temperature increased [Recovered/Resolved]
  - Tri-iodothyronine increased [Recovered/Resolved]
  - Intentional product misuse [Recovered/Resolved]

NARRATIVE: CASE EVENT DATE: 200612
